FAERS Safety Report 9541889 (Version 3)
Quarter: 2013Q4

REPORT INFORMATION
  Report Type: Report from Study
  Country: VE (occurrence: VE)
  Receive Date: 20130923
  Receipt Date: 20131115
  Transmission Date: 20140711
  Serious: Yes (Hospitalization)
  Sender: FDA-Public Use
  Company Number: PHHY2013VE101861

PATIENT
  Age: 56 Year
  Sex: Female

DRUGS (3)
  1. SANDOSTATIN LAR [Suspect]
     Indication: ACROMEGALY
     Dosage: 20 MG, EVERY 28 DAYS SOLUTION FOR INJECTION
     Route: 030
     Dates: start: 201208
  2. DOSTINEX [Concomitant]
     Indication: ACROMEGALY
     Dosage: 0.5 MG, BIW
     Route: 048
     Dates: start: 201302
  3. GLIVENOL [Concomitant]
     Indication: VARICOSE VEIN
     Dosage: 400 MG, DAILY
     Route: 048

REACTIONS (7)
  - Epistaxis [Recovered/Resolved]
  - Coma [Unknown]
  - Hyperhidrosis [Recovering/Resolving]
  - Spinal pain [Recovered/Resolved]
  - Headache [Recovering/Resolving]
  - Nausea [Recovering/Resolving]
  - Dizziness [Recovering/Resolving]
